FAERS Safety Report 9179653 (Version 1)
Quarter: 2012Q4

REPORT INFORMATION
  Report Type: 
  Country: JP (occurrence: JP)
  Receive Date: 20121029
  Receipt Date: 20121029
  Transmission Date: 20130627
  Serious: Yes (Hospitalization)
  Sender: FDA-Public Use
  Company Number: JP-GLAXOSMITHKLINE-B0840612A

PATIENT
  Age: 40 Year
  Sex: Female

DRUGS (1)
  1. ZOVIRAX [Suspect]
     Indication: VARICELLA
     Route: 042

REACTIONS (5)
  - Hepatic function abnormal [Recovering/Resolving]
  - Gestational hypertension [Recovering/Resolving]
  - HELLP syndrome [Recovering/Resolving]
  - Live birth [Unknown]
  - Exposure during pregnancy [Unknown]
